FAERS Safety Report 25462427 (Version 1)
Quarter: 2025Q2

REPORT INFORMATION
  Report Type: Spontaneous
  Country: US (occurrence: None)
  Receive Date: 20250619
  Receipt Date: 20250619
  Transmission Date: 20250716
  Serious: Yes (Hospitalization)
  Sender: FDA-CTU
  Company Number: None

PATIENT
  Age: 84 Year
  Sex: Male

DRUGS (1)
  1. VONJO [Suspect]
     Active Substance: PACRITINIB
     Indication: Myelofibrosis
     Dosage: FREQUENCY : DAILY;?
     Route: 048
     Dates: start: 20240925

REACTIONS (3)
  - Constipation [None]
  - Haemoglobin decreased [None]
  - Therapy interrupted [None]

NARRATIVE: CASE EVENT DATE: 20250612
